FAERS Safety Report 8156479 (Version 2)
Quarter: 2013Q4

REPORT INFORMATION
  Report Type: Spontaneous
  Country: US (occurrence: US)
  Receive Date: 20110926
  Receipt Date: 20131025
  Transmission Date: 20140711
  Serious: Yes (Hospitalization)
  Sender: FDA-Public Use
  Company Number: US-GLAXOSMITHKLINE-A0945831A

PATIENT
  Age: 65 Year
  Sex: Female

DRUGS (1)
  1. COREG CR [Suspect]
     Indication: CARDIAC DISORDER
     Dosage: 20MG UNKNOWN
     Route: 065
     Dates: start: 20090817

REACTIONS (3)
  - Renal failure acute [Unknown]
  - Diabetes mellitus [Unknown]
  - Cardiac operation [Unknown]
